FAERS Safety Report 9601806 (Version 1)
Quarter: 2013Q4

REPORT INFORMATION
  Report Type: Spontaneous
  Country: GB (occurrence: None)
  Receive Date: 20131002
  Receipt Date: 20131002
  Transmission Date: 20140711
  Serious: Yes (Hospitalization)
  Sender: FDA-Public Use
  Company Number: AUR-APL-2013-07975

PATIENT
  Age: 57 Year
  Sex: Male

DRUGS (5)
  1. AMOXICILLIN (AMOXICILLIN) [Suspect]
     Indication: RESPIRATORY TRACT INFECTION
     Dosage: 1500MG (500 MG, 3 IN 1 D) , ORAL
     Route: 048
     Dates: start: 20130805, end: 20130812
  2. ASPIRIN (ACETYLSALICYLIC ACID) [Concomitant]
  3. CLARITHROMYCIN (CLARITHROMYCIN) [Concomitant]
  4. DIGOXIN (DIGOXIN) [Concomitant]
  5. PARACETAMOL (PARACETAMOL) [Concomitant]

REACTIONS (5)
  - Alanine aminotransferase increased [None]
  - Gamma-glutamyltransferase increased [None]
  - Blood bilirubin increased [None]
  - Ascites [None]
  - Oedema peripheral [None]
